FAERS Safety Report 4413476-0 (Version None)
Quarter: 2004Q3

REPORT INFORMATION
  Report Type: 
  Country: None (occurrence: None)
  Receive Date: 20040727
  Receipt Date: 20040713
  Transmission Date: 20050211
  Serious: Yes (Hospitalization)
  Sender: FDA-Public Use
  Company Number: US-JNJFOC-20040603175

PATIENT
  Age: 67 Year
  Sex: Male

DRUGS (32)
  1. INFLIXIMAB, RECOMBINANT- BLINDED (INFLIXIMAB, RECOMBINANT) LYOPHILIZED [Suspect]
     Indication: CHRONIC OBSTRUCTIVE AIRWAYS DISEASE
     Dosage: SEE IMAGE
     Route: 042
     Dates: start: 20030717
  2. INFLIXIMAB, RECOMBINANT- BLINDED (INFLIXIMAB, RECOMBINANT) LYOPHILIZED [Suspect]
     Indication: CHRONIC OBSTRUCTIVE AIRWAYS DISEASE
     Dosage: SEE IMAGE
     Route: 042
     Dates: start: 20030731
  3. INFLIXIMAB, RECOMBINANT- BLINDED (INFLIXIMAB, RECOMBINANT) LYOPHILIZED [Suspect]
     Indication: CHRONIC OBSTRUCTIVE AIRWAYS DISEASE
     Dosage: SEE IMAGE
     Route: 042
     Dates: start: 20030828
  4. PLACEBO (PLACEBO) [Suspect]
     Indication: CHRONIC OBSTRUCTIVE AIRWAYS DISEASE
     Dosage: SEE IMAGE
     Route: 042
     Dates: start: 20030717
  5. PLACEBO (PLACEBO) [Suspect]
     Indication: CHRONIC OBSTRUCTIVE AIRWAYS DISEASE
     Dosage: SEE IMAGE
     Route: 042
     Dates: start: 20030731
  6. PLACEBO (PLACEBO) [Suspect]
     Indication: CHRONIC OBSTRUCTIVE AIRWAYS DISEASE
     Dosage: SEE IMAGE
     Route: 042
     Dates: start: 20030828
  7. FORADIL [Concomitant]
  8. COMBIVENT [Concomitant]
  9. SEREVENT [Concomitant]
  10. PULMICORT [Concomitant]
  11. FUROSEMIDE [Concomitant]
  12. ETODOLAC [Concomitant]
  13. ALPRAZOLAM [Concomitant]
  14. HYDROCODONE BITARTRATE [Concomitant]
  15. MECLIZINE [Concomitant]
  16. TRAZADONE (TRAZODONE) [Concomitant]
  17. NAPROSYN [Concomitant]
  18. TEQUIN [Concomitant]
  19. ALBUTEROL [Concomitant]
  20. NACL (SODIUM CHLORIDE) [Concomitant]
  21. REGLAN [Concomitant]
  22. XANAX [Concomitant]
  23. LEVSINEX (HYOSCYAMINE SULFATE) [Concomitant]
  24. BISACODYL (BISACODYL) [Concomitant]
  25. FENTANYL [Concomitant]
  26. MILK OF MAGNESA (MAGNESIUM HYDROXIDE) [Concomitant]
  27. KETOROLAC (KETOROLAC) [Concomitant]
  28. DOPAMINE HCL [Concomitant]
  29. DOCUSATE SODIUM (DOCUSATE SODIUM) [Concomitant]
  30. LORTAB [Concomitant]
  31. ZOFRAN [Concomitant]
  32. NICODERM [Concomitant]

REACTIONS (1)
  - LUNG NEOPLASM MALIGNANT [None]
